FAERS Safety Report 9685275 (Version 1)
Quarter: 2013Q4

REPORT INFORMATION
  Report Type: Spontaneous
  Country: US (occurrence: US)
  Receive Date: 20131113
  Receipt Date: 20131113
  Transmission Date: 20140711
  Serious: Yes (Other)
  Sender: FDA-Public Use
  Company Number: US-SA-2013SA116177

PATIENT
  Sex: Male
  Weight: 86.18 kg

DRUGS (2)
  1. PLAVIX [Suspect]
     Route: 065
  2. LIPITOR [Suspect]
     Route: 065

REACTIONS (5)
  - Angiopathy [Not Recovered/Not Resolved]
  - Road traffic accident [Unknown]
  - Back pain [Recovered/Resolved]
  - Sciatica [Not Recovered/Not Resolved]
  - Blood glucose abnormal [Not Recovered/Not Resolved]
